FAERS Safety Report 8876664 (Version 1)
Quarter: 2012Q4

REPORT INFORMATION
  Report Type: 
  Country: US (occurrence: US)
  Receive Date: 20121023
  Receipt Date: 20121023
  Transmission Date: 20130627
  Serious: No
  Sender: FDA-Public Use
  Company Number: US-AMGEN-USASP2012010022

PATIENT
  Sex: Female

DRUGS (1)
  1. ENBREL [Suspect]
     Indication: ANKYLOSING SPONDYLITIS
     Dosage: 50 mg, qwk
     Dates: start: 20070601

REACTIONS (9)
  - Migraine [Not Recovered/Not Resolved]
  - Injury [Recovered/Resolved]
  - Thermal burn [Recovered/Resolved]
  - Contusion [Recovered/Resolved]
  - Scratch [Recovered/Resolved]
  - Immune system disorder [Unknown]
  - Nasal congestion [Unknown]
  - Upper-airway cough syndrome [Unknown]
  - Hypersensitivity [Unknown]
